FAERS Safety Report 15556259 (Version 1)
Quarter: 2018Q4

REPORT INFORMATION
  Report Type: Report from Study
  Country: CR (occurrence: CR)
  Receive Date: 20181026
  Receipt Date: 20181026
  Transmission Date: 20190205
  Serious: Yes (Death)
  Sender: FDA-Public Use
  Company Number: PHHY2018CR137570

PATIENT
  Age: 86 Year
  Sex: Male

DRUGS (1)
  1. CO-DIOVAN [Suspect]
     Active Substance: HYDROCHLOROTHIAZIDE\VALSARTAN
     Indication: PRODUCT USED FOR UNKNOWN INDICATION
     Dosage: UNK  (12.5 HYDROCHLORTHIAZIDE, 160 VALSARTAN) (UNITS NOT PROVIDED)
     Route: 065

REACTIONS (1)
  - Death [Fatal]
